FAERS Safety Report 20194220 (Version 1)
Quarter: 2021Q4

REPORT INFORMATION
  Report Type: Spontaneous
  Country: US (occurrence: US)
  Receive Date: 20211216
  Receipt Date: 20211216
  Transmission Date: 20220303
  Serious: No
  Sender: FDA-Public Use
  Company Number: US-BEH-2021139490

PATIENT
  Age: 60 Year
  Sex: Female

DRUGS (1)
  1. HIZENTRA [Suspect]
     Active Substance: HUMAN IMMUNOGLOBULIN G
     Indication: Hypogammaglobulinaemia
     Dosage: 17 GRAM, QW
     Route: 058
     Dates: start: 20210618

REACTIONS (1)
  - Asthma [Not Recovered/Not Resolved]

NARRATIVE: CASE EVENT DATE: 20211201
